FAERS Safety Report 4956738-0 (Version None)
Quarter: 2006Q1

REPORT INFORMATION
  Report Type: 
  Country: None (occurrence: None)
  Receive Date: 20060329
  Receipt Date: 20060308
  Transmission Date: 20060701
  Serious: Yes (Hospitalization)
  Sender: FDA-Public Use
  Company Number: JP-ROCHE-439933

PATIENT
  Age: 49 Year
  Sex: Male
  Weight: 66 kg

DRUGS (12)
  1. TAMIFLU [Suspect]
     Route: 048
     Dates: start: 20060223, end: 20060224
  2. IOMERON-150 [Suspect]
     Indication: DRUG USE FOR UNKNOWN INDICATION
     Route: 042
     Dates: start: 20060207, end: 20060207
  3. IOMERON-150 [Suspect]
     Route: 042
     Dates: start: 20060220, end: 20060220
  4. PANALDINE [Concomitant]
     Dosage: FORM = ORAL FORMULATION (NOT OTHERWISE SPECIFIED)
     Route: 048
     Dates: start: 20060207
  5. ASPIRIN [Concomitant]
     Route: 048
     Dates: start: 20060207
  6. SIGMART [Concomitant]
     Route: 048
     Dates: start: 20060207
  7. RENIVACE [Concomitant]
     Route: 048
     Dates: start: 20060207
  8. ARTIST [Concomitant]
     Route: 048
     Dates: start: 20060207
  9. SELBEX [Concomitant]
     Dosage: FORM = ORAL FORMULATION (NOT OTHERWISE SPECIFIED)
     Route: 048
     Dates: start: 20060207
  10. LIPITOR [Concomitant]
     Route: 048
     Dates: start: 20060207
  11. MAGNESIUM OXIDE [Concomitant]
     Dosage: DRUG REPORTED AS 'UNKNOWN DRUG'
  12. MERISLON [Concomitant]
     Route: 048

REACTIONS (1)
  - URTICARIA [None]
